FAERS Safety Report 6729023-4 (Version None)
Quarter: 2010Q2

REPORT INFORMATION
  Report Type: 
  Country: None (occurrence: None)
  Receive Date: 20100517
  Receipt Date: 20100330
  Transmission Date: 20101027
  Serious: No
  Sender: FDA-Public Use
  Company Number: US-ABBOTT-10P-163-0635359-00

PATIENT
  Sex: Male
  Weight: 99.88 kg

DRUGS (3)
  1. SIMCOR [Suspect]
     Indication: BLOOD CHOLESTEROL INCREASED
     Dosage: 500/20MG AT BED TIME DAILY
     Dates: start: 20100328
  2. PRESCRIBED MEDICATION FOR GAS [Concomitant]
     Indication: DRUG USE FOR UNKNOWN INDICATION
  3. PRESCRIBED MEDICATION FOR GAS [Concomitant]

REACTIONS (3)
  - EXERCISE TOLERANCE DECREASED [None]
  - FATIGUE [None]
  - FLUSHING [None]
